FAERS Safety Report 7543298-3 (Version None)
Quarter: 2011Q2

REPORT INFORMATION
  Report Type: 
  Country: None (occurrence: None)
  Receive Date: 20110607
  Receipt Date: 20110413
  Transmission Date: 20111010
  Serious: Yes (Other)
  Sender: FDA-Public Use
  Company Number: 2011028304

PATIENT
  Age: 39 Year
  Sex: Female
  Weight: 54.4316 kg

DRUGS (7)
  1. CALCIUM-MAGNESIUM-ZINC (CALCIUM MAGNESIUM ZINC) [Concomitant]
  2. MEMORIN (MEMORINO) [Concomitant]
  3. MULTIVITAMIN [Concomitant]
  4. AZITHROMYCIN [Suspect]
     Dates: start: 20110404, end: 20110404
  5. FLONASE [Concomitant]
  6. HIZENTRA [Suspect]
     Indication: IMMUNODEFICIENCY COMMON VARIABLE
     Dosage: (13 G 1X/WEEK, 65 ML IN 5 SITES FOR 1-2 HOURS SUBCUTANEOUS)
     Route: 058
     Dates: start: 20110328
  7. PROBIOTIC (LACTOBACILLUS REUTERI) [Concomitant]

REACTIONS (6)
  - PELVIC PAIN [None]
  - CARPAL TUNNEL SYNDROME [None]
  - BACK PAIN [None]
  - PAIN [None]
  - STREPTOCOCCAL URINARY TRACT INFECTION [None]
  - PAIN IN EXTREMITY [None]
